FAERS Safety Report 9504070 (Version 1)
Quarter: 2013Q1

REPORT INFORMATION
  Report Type: Spontaneous
  Country: US (occurrence: None)
  Receive Date: 20130225
  Receipt Date: 20130225
  Transmission Date: 20140127
  Serious: No
  Sender: FDA-Public Use
  Company Number: 363759

PATIENT
  Age: 79 Year
  Sex: Male

DRUGS (3)
  1. VICTOZA (LIRAGLUTIDE) SOLUTION FOR INJECTION [Suspect]
     Indication: TYPE 2 DIABETES MELLITUS
     Route: 058
     Dates: start: 201207
  2. LISINOPRIL (LISINOPRIL) [Concomitant]
  3. MEXILETEINE (MEXILETINE) [Concomitant]

REACTIONS (2)
  - Neck mass [None]
  - Weight decreased [None]
